FAERS Safety Report 4377678-4 (Version None)
Quarter: 2004Q2

REPORT INFORMATION
  Report Type: 
  Country: None (occurrence: None)
  Receive Date: 20040615
  Receipt Date: 20040609
  Transmission Date: 20050107
  Serious: Yes (Hospitalization)
  Sender: FDA-Public Use
  Company Number: AU-ROCHE-370676

PATIENT
  Sex: Male

DRUGS (4)
  1. MYCOPHENOLATE MOFETIL [Suspect]
     Indication: DRUG USE FOR UNKNOWN INDICATION
     Route: 048
  2. NEORAL [Suspect]
     Indication: TRANSPLANT
     Route: 048
     Dates: start: 20030301
  3. BASILIXIMAB [Concomitant]
  4. FENTANYL [Concomitant]

REACTIONS (1)
  - PANCREATITIS ACUTE [None]
